FAERS Safety Report 15687219 (Version 2)
Quarter: 2020Q4

REPORT INFORMATION
  Report Type: Spontaneous
  Country: US (occurrence: US)
  Receive Date: 20181204
  Receipt Date: 20201109
  Transmission Date: 20210113
  Serious: Yes (Disabling)
  Sender: FDA-Public Use
  Company Number: US-TEVA-2018-US-982207

PATIENT
  Age: 64 Year
  Sex: Female

DRUGS (8)
  1. TAXOTERE [Suspect]
     Active Substance: DOCETAXEL
     Indication: BREAST CANCER FEMALE
     Dosage: DOSAGE: 134 MILLIGRAM, NUMBER OF CYCLES: 06; EVERY THREE WEEKS
     Route: 065
     Dates: start: 20150129, end: 20150514
  2. CELECOXIB. [Concomitant]
     Active Substance: CELECOXIB
     Dates: start: 201302
  3. ATENOLOL. [Concomitant]
     Active Substance: ATENOLOL
     Dates: start: 201302
  4. ATORVASTATIN [Concomitant]
     Active Substance: ATORVASTATIN
     Dates: start: 201302
  5. PARAPLATIN [Concomitant]
     Active Substance: CARBOPLATIN
     Indication: BREAST CANCER FEMALE
     Dosage: IN CYCLES: EVERY THREE WEEKS
     Dates: start: 20150129, end: 20150514
  6. HERCEPTIN [Concomitant]
     Active Substance: TRASTUZUMAB
     Indication: BREAST CANCER FEMALE
     Dosage: IN CYCLES: EVERY THREE WEEKS
     Dates: start: 20150129, end: 20150514
  7. LEVOTHYROXINE. [Concomitant]
     Active Substance: LEVOTHYROXINE
     Dates: start: 201302
  8. DOCETAXEL. [Suspect]
     Active Substance: DOCETAXEL
     Indication: BREAST CANCER FEMALE
     Dosage: DOSAGE: 134 MILLIGRAM, NUMBER OF CYCLES: 06; EVERY THREE WEEKS
     Route: 065
     Dates: start: 20150129, end: 20150514

REACTIONS (4)
  - Hair colour changes [Not Recovered/Not Resolved]
  - Hair texture abnormal [Not Recovered/Not Resolved]
  - Madarosis [Not Recovered/Not Resolved]
  - Alopecia [Not Recovered/Not Resolved]

NARRATIVE: CASE EVENT DATE: 201502
